FAERS Safety Report 8222321-7 (Version None)
Quarter: 2012Q1

REPORT INFORMATION
  Report Type: 
  Country: None (occurrence: None)
  Receive Date: 20120320
  Receipt Date: 20120314
  Transmission Date: 20120608
  Serious: Yes (Hospitalization)
  Sender: FDA-Public Use
  Company Number: US-GLAXOSMITHKLINE-B0789475A

PATIENT
  Age: 75 Year
  Sex: Male

DRUGS (1)
  1. AVANDIA [Suspect]
     Indication: DIABETES MELLITUS
     Route: 048
     Dates: start: 20000101, end: 20080101

REACTIONS (6)
  - MYOCARDIAL INFARCTION [None]
  - STENT PLACEMENT [None]
  - CATHETERISATION CARDIAC [None]
  - CARDIAC FAILURE CONGESTIVE [None]
  - CARDIAC ASSISTANCE DEVICE USER [None]
  - VASCULAR GRAFT [None]
